FAERS Safety Report 8772769 (Version 3)
Quarter: 2013Q2

REPORT INFORMATION
  Report Type: Report from Study
  Country: US (occurrence: US)
  Receive Date: 20120914
  Receipt Date: 20130618
  Transmission Date: 20140414
  Serious: Yes (Hospitalization)
  Sender: FDA-Public Use
  Company Number: US-PFIZER INC-2012215463

PATIENT
  Age: 70 Year
  Sex: Male
  Weight: 109.5 kg

DRUGS (10)
  1. PF-04856884 [Suspect]
     Indication: METASTATIC RENAL CELL CARCINOMA
     Dosage: 1500 MG, WEEKLY
     Route: 042
     Dates: start: 20120703
  2. AXITINIB [Suspect]
     Indication: METASTATIC RENAL CELL CARCINOMA
     Dosage: 5 MG, 2X/DAY
     Route: 048
     Dates: start: 20120703
  3. TYLENOL [Concomitant]
     Indication: PAIN
     Dosage: 325 MG, AS NEEDED
     Route: 048
     Dates: start: 2007
  4. ALIGN [Concomitant]
     Indication: SUPPLEMENTATION THERAPY
     Dosage: 4 MG, 1X/DAY
     Route: 048
     Dates: start: 20120515
  5. METAMUCIL [Concomitant]
     Indication: PROPHYLAXIS
     Dosage: 3.4 G, AS NEEDED
     Route: 048
     Dates: start: 20120415
  6. PRAVACHOL [Concomitant]
     Indication: HYPERCHOLESTEROLAEMIA
     Dosage: 80 MG,1X/DAY, AT BEDTIME
     Route: 048
     Dates: start: 2010
  7. SENOKOT [Concomitant]
     Indication: CONSTIPATION
     Dosage: 8.6/50 MG, 1X/DAY
     Route: 048
     Dates: start: 20120615
  8. SYNTHROID [Concomitant]
     Indication: HYPOTHYROIDISM
     Dosage: 50 UG, 1X/DAY
     Route: 048
     Dates: start: 20120115
  9. TYLENOL PM [Concomitant]
     Indication: INSOMNIA
     Dosage: 500/25 MG, 1X/DAY, AT BEDTIME
     Route: 048
     Dates: start: 20120115
  10. VITAMIN D3 [Concomitant]
     Indication: SUPPLEMENTATION THERAPY
     Dosage: 2000 IU, 1X/DAY
     Route: 048
     Dates: start: 2007

REACTIONS (1)
  - Hypovolaemia [Recovered/Resolved]
